FAERS Safety Report 8560430-3 (Version None)
Quarter: 2012Q3

REPORT INFORMATION
  Report Type: 
  Country: None (occurrence: None)
  Receive Date: 20120802
  Receipt Date: 20120720
  Transmission Date: 20120928
  Serious: No
  Sender: FDA-Public Use
  Company Number: US-ASTRAZENECA-2012SE39466

PATIENT
  Age: 77 Year
  Sex: Male
  Weight: 86.2 kg

DRUGS (7)
  1. POTASSIUM [Concomitant]
  2. LASIX [Concomitant]
  3. ASPIRIN [Concomitant]
  4. SYMBICORT [Suspect]
     Indication: ASTHMA
     Dosage: 160/4.5 MCG,TWO PUFFS, TWO TIMES A DAY
     Route: 055
     Dates: start: 20120426
  5. LIPITOR [Concomitant]
  6. ALBUTEROL [Concomitant]
     Dosage: AS REQUIRED
  7. LISINOPRIL [Concomitant]

REACTIONS (3)
  - DYSPNOEA [None]
  - CIRCUMSTANCE OR INFORMATION CAPABLE OF LEADING TO MEDICATION ERROR [None]
  - CHEST DISCOMFORT [None]
